FAERS Safety Report 23966452 (Version 1)
Quarter: 2024Q2

REPORT INFORMATION
  Report Type: Spontaneous
  Country: CA (occurrence: CA)
  Receive Date: 20240612
  Receipt Date: 20240612
  Transmission Date: 20240716
  Serious: Yes (Life-Threatening, Hospitalization)
  Sender: FDA-Public Use
  Company Number: None

PATIENT
  Age: 7 Year
  Sex: Male
  Weight: 23 kg

DRUGS (49)
  1. TACROLIMUS [Suspect]
     Active Substance: TACROLIMUS
     Indication: Graft versus host disease
     Dosage: 2 EVERY 1 DAYS
     Route: 042
  2. ACETAMINOPHEN [Concomitant]
     Active Substance: ACETAMINOPHEN
  3. ACYCLOVIR [Concomitant]
     Active Substance: ACYCLOVIR
  4. ALEMTUZUMAB [Concomitant]
     Active Substance: ALEMTUZUMAB
  5. AMPHOTERICIN B [Concomitant]
     Active Substance: AMPHOTERICIN B
  6. BORTEZOMIB [Concomitant]
     Active Substance: BORTEZOMIB
  7. CARDENE [Concomitant]
     Active Substance: NICARDIPINE HYDROCHLORIDE
  8. CETIRIZINE [Concomitant]
     Active Substance: CETIRIZINE HYDROCHLORIDE
     Route: 065
  9. CIPROFLOXACIN [Concomitant]
     Active Substance: CIPROFLOXACIN
  10. DANAZOL [Concomitant]
     Active Substance: DANAZOL
  11. CYCLOPHOSPHAMIDE [Concomitant]
     Active Substance: CYCLOPHOSPHAMIDE
  12. DARATUMUMAB [Concomitant]
     Active Substance: DARATUMUMAB
     Route: 042
  13. DEXMEDETOMIDINE HYDROCHLORIDE [Concomitant]
     Active Substance: DEXMEDETOMIDINE HYDROCHLORIDE
  14. DIPHENHYDRAMINE [Concomitant]
     Active Substance: DIPHENHYDRAMINE
  15. FAMOTIDINE [Concomitant]
     Active Substance: FAMOTIDINE
  16. FILGRASTIM [Concomitant]
     Active Substance: FILGRASTIM
  17. FLUDARABINE [Concomitant]
     Active Substance: FLUDARABINE PHOSPHATE
  18. FUROSEMIDE [Concomitant]
     Active Substance: FUROSEMIDE
     Route: 065
  19. GABAPENTIN [Concomitant]
     Active Substance: GABAPENTIN
  20. GANCICLOVIR [Concomitant]
     Active Substance: GANCICLOVIR
  21. HYDROCORTISONE [Concomitant]
     Active Substance: HYDROCORTISONE\HYDROCORTISONE ACETATE
  22. HYDROXYZINE [Concomitant]
     Active Substance: HYDROXYZINE HYDROCHLORIDE
  23. LANSOPRAZOLE [Concomitant]
     Active Substance: LANSOPRAZOLE
  24. LEVETIRACETAM [Concomitant]
     Active Substance: LEVETIRACETAM
     Route: 065
  25. LEVOFLOXACIN [Concomitant]
     Active Substance: LEVOFLOXACIN
  26. LORATADINE [Concomitant]
     Active Substance: LORATADINE
     Route: 065
  27. LORAZEPAM [Concomitant]
     Active Substance: LORAZEPAM
     Route: 065
  28. MAGNESIUM [Concomitant]
     Active Substance: MAGNESIUM
  29. MEROPENEM [Concomitant]
     Active Substance: MEROPENEM
  30. METOCLOPRAMIDE [Concomitant]
     Active Substance: METOCLOPRAMIDE
  31. MONTELUKAST [Concomitant]
     Active Substance: MONTELUKAST SODIUM
  32. MYCAMINE [Concomitant]
     Active Substance: MICAFUNGIN SODIUM
  33. MYCOPHENOLATE MOFETIL [Concomitant]
     Active Substance: MYCOPHENOLATE MOFETIL
  34. OLANZAPINE [Concomitant]
     Active Substance: OLANZAPINE
  35. ONDANSETRON [Concomitant]
     Active Substance: ONDANSETRON
  36. PENTAM [Concomitant]
     Active Substance: PENTAMIDINE ISETHIONATE
  37. PIPERACILLIN AND TAZOBACTAM [Concomitant]
     Active Substance: PIPERACILLIN SODIUM\TAZOBACTAM SODIUM
  38. POLYETHYLENE GLYCOL [Concomitant]
     Active Substance: POLYETHYLENE GLYCOL
  39. POSACONAZOLE [Concomitant]
     Active Substance: POSACONAZOLE
  40. LETERMOVIR [Concomitant]
     Active Substance: LETERMOVIR
  41. PROTAMINE SULFATE [Concomitant]
     Active Substance: PROTAMINE SULFATE
  42. SULFAMETHOXAZOLE\TRIMETHOPRIM [Concomitant]
     Active Substance: SULFAMETHOXAZOLE\TRIMETHOPRIM
     Route: 065
  43. THYMOGLOBULIN [Concomitant]
     Active Substance: LAPINE T-LYMPHOCYTE IMMUNE GLOBULIN
  44. TOBRAMYCIN [Concomitant]
     Active Substance: TOBRAMYCIN\TOBRAMYCIN SULFATE
  45. TPN [Concomitant]
     Active Substance: AMINO ACIDS\DEXTROSE\ELECTROLYTES NOS\SOYBEAN OIL
  46. TRANEXAMIC ACID [Concomitant]
     Active Substance: TRANEXAMIC ACID
  47. URSODIOL [Concomitant]
     Active Substance: URSODIOL
  48. VALACYCLOVIR HYDROCHLORIDE [Concomitant]
     Active Substance: VALACYCLOVIR HYDROCHLORIDE
  49. VANCOMYCIN [Concomitant]
     Active Substance: VANCOMYCIN

REACTIONS (4)
  - Blood pressure decreased [Unknown]
  - Generalised tonic-clonic seizure [Unknown]
  - Hypertension [Unknown]
  - Posterior reversible encephalopathy syndrome [Unknown]
